FAERS Safety Report 9667455 (Version 1)
Quarter: 2013Q4

REPORT INFORMATION
  Report Type: Spontaneous
  Country: US (occurrence: US)
  Receive Date: 20131101
  Receipt Date: 20131101
  Transmission Date: 20140711
  Serious: Yes (Other)
  Sender: FDA-Public Use
  Company Number: US-SAVIENT-2012S1000056

PATIENT
  Sex: Male

DRUGS (2)
  1. KRYSTEXXA INJECTION [Suspect]
     Indication: GOUT
     Route: 042
  2. KRYSTEXXA INJECTION [Suspect]
     Indication: GOUT
     Route: 042

REACTIONS (2)
  - Infusion related reaction [Recovered/Resolved]
  - Type IV hypersensitivity reaction [Recovered/Resolved]
